APPROVED DRUG PRODUCT: TADALAFIL
Active Ingredient: TADALAFIL
Strength: 2.5MG
Dosage Form/Route: TABLET;ORAL
Application: A215556 | Product #001 | TE Code: AB1
Applicant: VKT PHARMA PRIVATE LTD
Approved: Nov 4, 2021 | RLD: No | RS: No | Type: RX